FAERS Safety Report 24836652 (Version 1)
Quarter: 2025Q1

REPORT INFORMATION
  Report Type: Spontaneous
  Country: CH (occurrence: CH)
  Receive Date: 20250113
  Receipt Date: 20250113
  Transmission Date: 20250408
  Serious: Yes (Death)
  Sender: PHARMACEUTICAL ASSOC
  Company Number: CH-PAIPHARMA-2025-CH-000003

PATIENT
  Age: 87 Year

DRUGS (2)
  1. PIPAMPERONE [Suspect]
     Active Substance: PIPAMPERONE
     Indication: Delirium
  2. HALOPERIDOL [Suspect]
     Active Substance: HALOPERIDOL
     Indication: Delirium

REACTIONS (1)
  - Aspiration [Fatal]
